FAERS Safety Report 24724532 (Version 1)
Quarter: 2024Q4

REPORT INFORMATION
  Report Type: Report from Study
  Country: US (occurrence: US)
  Receive Date: 20241212
  Receipt Date: 20241212
  Transmission Date: 20250114
  Serious: Yes (Other)
  Sender: EMD SERONO INC
  Company Number: US-Merck Healthcare KGaA-9240149

PATIENT
  Sex: Female

DRUGS (3)
  1. REBIF [Suspect]
     Active Substance: INTERFERON BETA-1A
     Indication: Multiple sclerosis
     Dates: start: 20030120
  2. REBIF [Suspect]
     Active Substance: INTERFERON BETA-1A
  3. ERGOCALCIFEROL [Concomitant]
     Active Substance: ERGOCALCIFEROL
     Indication: Product used for unknown indication

REACTIONS (23)
  - Renal failure [Unknown]
  - Renal mass [Unknown]
  - Influenza like illness [Recovering/Resolving]
  - Body temperature increased [Unknown]
  - Hypertonic bladder [Recovering/Resolving]
  - Anal incontinence [Unknown]
  - Multiple sclerosis [Unknown]
  - Muscle spasms [Unknown]
  - Anxiety [Unknown]
  - Nausea [Unknown]
  - Abdominal discomfort [Unknown]
  - Nervousness [Unknown]
  - Gait disturbance [Unknown]
  - Insomnia [Not Recovered/Not Resolved]
  - Mobility decreased [Unknown]
  - Feeling hot [Unknown]
  - Discomfort [Unknown]
  - Peripheral swelling [Unknown]
  - Skin tightness [Unknown]
  - Somnolence [Unknown]
  - Dyspnoea exertional [Unknown]
  - Logorrhoea [Unknown]
  - Fatigue [Unknown]
